FAERS Safety Report 18485748 (Version 2)
Quarter: 2020Q4

REPORT INFORMATION
  Report Type: Spontaneous
  Country: BR (occurrence: BR)
  Receive Date: 20201110
  Receipt Date: 20201120
  Transmission Date: 20210114
  Serious: Yes (Other)
  Sender: FDA-Public Use
  Company Number: BR-ROCHE-2710066

PATIENT
  Age: 65 Year
  Sex: Female

DRUGS (3)
  1. LUCENTIS [Suspect]
     Active Substance: RANIBIZUMAB
     Indication: RETINAL NEOVASCULARISATION
     Route: 031
  2. LUCENTIS [Suspect]
     Active Substance: RANIBIZUMAB
     Indication: AGE-RELATED MACULAR DEGENERATION
     Dosage: TWO MONTHS AFTER FIRST INJECTION IN LEFT EYE
     Route: 031
  3. LUCENTIS [Suspect]
     Active Substance: RANIBIZUMAB
     Dosage: TWO MONTHS AFTER SECOND APPLICATION IN LEFT EYE
     Route: 031

REACTIONS (6)
  - Subretinal fluid [Unknown]
  - Metamorphopsia [Unknown]
  - Retinal depigmentation [Unknown]
  - Retinal oedema [Unknown]
  - Product dose omission issue [Unknown]
  - Retinal neovascularisation [Unknown]
